FAERS Safety Report 6038731-2 (Version None)
Quarter: 2009Q1

REPORT INFORMATION
  Report Type: 
  Country: None (occurrence: None)
  Receive Date: 20090113
  Receipt Date: 20081203
  Transmission Date: 20090719
  Serious: No
  Sender: FDA-Public Use
  Company Number: 2008BM000238

PATIENT
  Age: 19 Year
  Sex: Male
  Weight: 56.6996 kg

DRUGS (3)
  1. KUVAN [Suspect]
     Indication: PHENYLKETONURIA
     Dosage: 700 MG;QD;PO, 1200 MG;QD;PO
     Route: 048
     Dates: start: 20081122, end: 20081128
  2. KUVAN [Suspect]
     Indication: PHENYLKETONURIA
     Dosage: 700 MG;QD;PO, 1200 MG;QD;PO
     Route: 048
     Dates: start: 20081129
  3. ZOLOFT [Concomitant]

REACTIONS (5)
  - ABDOMINAL PAIN [None]
  - DECREASED APPETITE [None]
  - DIZZINESS [None]
  - FATIGUE [None]
  - NECK PAIN [None]
